FAERS Safety Report 13748296 (Version 1)
Quarter: 2017Q3

REPORT INFORMATION
  Report Type: Spontaneous
  Country: US (occurrence: US)
  Receive Date: 20170713
  Receipt Date: 20170713
  Transmission Date: 20171127
  Serious: No
  Sender: FDA-Public Use
  Company Number: US-PFIZER INC-2017299041

PATIENT
  Age: 48 Year
  Sex: Female
  Weight: 93.88 kg

DRUGS (1)
  1. IBRANCE [Suspect]
     Active Substance: PALBOCICLIB
     Indication: BREAST CANCER
     Dosage: 125 MG, CYCLIC [DAY 1-21 Q 28 DAYS]
     Route: 048
     Dates: start: 20161228

REACTIONS (1)
  - Neoplasm progression [Unknown]
